FAERS Safety Report 7039638-4 (Version None)
Quarter: 2010Q4

REPORT INFORMATION
  Report Type: 
  Country: None (occurrence: None)
  Receive Date: 20101012
  Receipt Date: 20101005
  Transmission Date: 20110411
  Serious: Yes (Death)
  Sender: FDA-Public Use
  Company Number: A0885735A

PATIENT
  Sex: Male
  Weight: 58 kg

DRUGS (4)
  1. SERETIDE [Suspect]
     Indication: CHRONIC OBSTRUCTIVE PULMONARY DISEASE
     Dosage: 2PUFF TWICE PER DAY
     Route: 065
     Dates: start: 20091201, end: 20100719
  2. ACETYLSALICYLIC ACID SRT [Concomitant]
     Indication: HEADACHE
     Dates: start: 20100101, end: 20100701
  3. ATROVENT [Concomitant]
     Dosage: 30DROP SIX TIMES PER DAY
     Dates: start: 20100301, end: 20100701
  4. BACTRIM [Concomitant]
     Dosage: 1TAB TWICE PER DAY
     Dates: start: 20100715, end: 20100719

REACTIONS (2)
  - DEATH [None]
  - OVERDOSE [None]
